FAERS Safety Report 18055455 (Version 2)
Quarter: 2021Q3

REPORT INFORMATION
  Report Type: Spontaneous
  Country: US (occurrence: US)
  Receive Date: 20200722
  Receipt Date: 20210923
  Transmission Date: 20211014
  Serious: Yes (Death, Hospitalization, Other)
  Sender: FDA-Public Use
  Company Number: US-PURDUE-USA-2020-0158576

PATIENT
  Age: 58 Year
  Sex: Male

DRUGS (3)
  1. DILAUDID [Suspect]
     Active Substance: HYDROMORPHONE HYDROCHLORIDE
     Indication: PRODUCT USED FOR UNKNOWN INDICATION
     Dosage: UNK
     Route: 048
  2. OXYCONTIN [Suspect]
     Active Substance: OXYCODONE HYDROCHLORIDE
     Indication: PRODUCT USED FOR UNKNOWN INDICATION
     Dosage: UNK
     Route: 048
  3. MORPHINE [Concomitant]
     Active Substance: MORPHINE
     Indication: ADVERSE EVENT
     Dosage: UNK
     Route: 065

REACTIONS (10)
  - Disorientation [Unknown]
  - Hospitalisation [Unknown]
  - Drug dependence [Unknown]
  - Decreased appetite [Unknown]
  - General physical health deterioration [Unknown]
  - Pain [Unknown]
  - Fall [Unknown]
  - Anger [Unknown]
  - Aphasia [Unknown]
  - Death [Fatal]

NARRATIVE: CASE EVENT DATE: 2008
